FAERS Safety Report 8488641-6 (Version None)
Quarter: 2012Q3

REPORT INFORMATION
  Report Type: 
  Country: None (occurrence: None)
  Receive Date: 20120705
  Receipt Date: 20120627
  Transmission Date: 20120928
  Serious: Yes (Hospitalization)
  Sender: FDA-Public Use
  Company Number: FR-UCBSA-060688

PATIENT
  Age: 57 Year
  Sex: Female

DRUGS (3)
  1. SOLU-MEDROL [Concomitant]
     Indication: RHEUMATOID ARTHRITIS
     Dosage: 3 BOLUS
     Dates: start: 20120301
  2. CIMZIA [Suspect]
     Indication: RHEUMATOID ARTHRITIS
     Route: 058
     Dates: start: 20120406, end: 20120406
  3. RITUXIMAB [Concomitant]

REACTIONS (4)
  - INJECTION SITE PAIN [None]
  - PSORIASIS [None]
  - INFLUENZA LIKE ILLNESS [None]
  - ASTHENIA [None]
